FAERS Safety Report 9321697 (Version 1)
Quarter: 2013Q2

REPORT INFORMATION
  Report Type: Spontaneous
  Country: None (occurrence: None)
  Receive Date: 20130528
  Receipt Date: 20130528
  Transmission Date: 20140414
  Serious: Yes (Hospitalization)
  Sender: FDA-Public Use
  Company Number: 2012AP000725

PATIENT
  Age: 39 Year
  Sex: Male
  Weight: 74.8 kg

DRUGS (13)
  1. FERRIPROX [Suspect]
     Indication: SICKLE CELL ANAEMIA
     Route: 048
     Dates: start: 20120309, end: 20120310
  2. FERRIPROX [Suspect]
     Indication: IRON OVERLOAD
     Route: 048
     Dates: start: 20120309, end: 20120310
  3. EXJADE [Concomitant]
  4. FOLIC ACID [Concomitant]
  5. OXYCONTIN [Concomitant]
  6. CARVEDILOL [Concomitant]
  7. SODIUM BICARBONATE [Concomitant]
  8. HYDRALAZINE [Concomitant]
  9. ASA [Concomitant]
  10. PLAVIX / 01220701 / [Concomitant]
  11. OXYCODONE [Concomitant]
  12. BENADRYL [Concomitant]
  13. DESFERAL [Concomitant]

REACTIONS (4)
  - Sickle cell anaemia with crisis [None]
  - Nausea [None]
  - Dizziness [None]
  - Vomiting [None]
